FAERS Safety Report 10942900 (Version 1)
Quarter: 2015Q1

REPORT INFORMATION
  Report Type: Spontaneous
  Country: US (occurrence: None)
  Receive Date: 20150212
  Receipt Date: 20150212
  Transmission Date: 20150721
  Serious: No
  Sender: FDA-Public Use
  Company Number: TPA2011A03927

PATIENT
  Age: 64 Year
  Sex: Male
  Weight: 82.56 kg

DRUGS (3)
  1. UNKNOWN DIABETES MEDICATION (DRUG USED IN DIABETES [Concomitant]
  2. UNKNOWN THYROID MEDICATION (THYROID THERAPY) [Concomitant]
  3. ULORIC [Suspect]
     Active Substance: FEBUXOSTAT
     Indication: GOUT
     Route: 048
     Dates: start: 2010, end: 201104

REACTIONS (1)
  - Drug ineffective [None]

NARRATIVE: CASE EVENT DATE: 201104
